FAERS Safety Report 5089761-9 (Version None)
Quarter: 2006Q3

REPORT INFORMATION
  Report Type: 
  Country: None (occurrence: None)
  Receive Date: 20060828
  Receipt Date: 20060802
  Transmission Date: 20061208
  Serious: Yes (Other)
  Sender: FDA-Public Use
  Company Number: PHBS2006SG11479

PATIENT
  Sex: Male

DRUGS (1)
  1. VOLTAREN [Suspect]
     Dosage: UNK, UNK
     Dates: start: 20060704

REACTIONS (8)
  - INJECTION SITE MASS [None]
  - INJECTION SITE NECROSIS [None]
  - INJECTION SITE PAIN [None]
  - MOVEMENT DISORDER [None]
  - MUSCLE TIGHTNESS [None]
  - SCAR [None]
  - TENDERNESS [None]
  - TUBERCULOSIS [None]
